FAERS Safety Report 6923961-5 (Version None)
Quarter: 2010Q3

REPORT INFORMATION
  Report Type: 
  Country: None (occurrence: None)
  Receive Date: 20100813
  Receipt Date: 20100803
  Transmission Date: 20110219
  Serious: Yes (Death)
  Sender: FDA-Public Use
  Company Number: DE-ELI_LILLY_AND_COMPANY-DE201008000891

PATIENT
  Sex: Female

DRUGS (4)
  1. FORTEO [Suspect]
     Indication: OSTEOPOROSIS
     Dosage: UNK, DAILY (1/D)
     Route: 058
     Dates: start: 20090109
  2. CORTISONE ACETATE [Concomitant]
     Indication: PNEUMONIA
     Dosage: UNK, UNKNOWN
     Route: 065
  3. INSULIN [Concomitant]
     Dosage: UNK, UNKNOWN
     Route: 065
  4. CALCIUM +VIT D [Concomitant]
     Dosage: UNK, UNKNOWN
     Route: 065

REACTIONS (2)
  - HYPERGLYCAEMIA [None]
  - SHOCK [None]
